FAERS Safety Report 6507351-5 (Version None)
Quarter: 2009Q4

REPORT INFORMATION
  Report Type: 
  Country: None (occurrence: None)
  Receive Date: 20091221
  Receipt Date: 20091209
  Transmission Date: 20100525
  Serious: Yes (Hospitalization)
  Sender: FDA-Public Use
  Company Number: BE-PFIZER INC-2009304178

PATIENT
  Age: 61 Year

DRUGS (1)
  1. SUNITINIB MALATE [Suspect]
     Dosage: 37.5 MG, 1X/DAY
     Route: 048
     Dates: start: 20090803, end: 20091123

REACTIONS (5)
  - ANAEMIA [None]
  - BRONCHITIS [None]
  - GENERAL PHYSICAL HEALTH DETERIORATION [None]
  - HYPERTHYROIDISM [None]
  - LIVER FUNCTION TEST ABNORMAL [None]
